FAERS Safety Report 7030111-6 (Version None)
Quarter: 2010Q4

REPORT INFORMATION
  Report Type: 
  Country: None (occurrence: None)
  Receive Date: 20101006
  Receipt Date: 20100928
  Transmission Date: 20110411
  Serious: Yes (Life-Threatening)
  Sender: FDA-Public Use
  Company Number: CA-PFIZER INC-2010069807

PATIENT
  Age: 69 Year
  Sex: Female
  Weight: 69.841 kg

DRUGS (4)
  1. LIPITOR [Suspect]
     Dosage: 100 MG, 1X/DAY
     Dates: start: 19990818, end: 19990825
  2. ATENOLOL [Concomitant]
     Dosage: UNK
  3. ZESTRIL [Concomitant]
     Dosage: UNK
  4. MULTI-VITAMINS [Concomitant]
     Dosage: UNK

REACTIONS (3)
  - DYSPHONIA [None]
  - RASH [None]
  - THROAT TIGHTNESS [None]
